FAERS Safety Report 10736063 (Version 2)
Quarter: 2017Q2

REPORT INFORMATION
  Report Type: Spontaneous
  Country: US (occurrence: US)
  Receive Date: 20150126
  Receipt Date: 20170623
  Transmission Date: 20170829
  Serious: Yes (Other)
  Sender: FDA-Public Use
  Company Number: US-JNJFOC-20141203512

PATIENT
  Sex: Male

DRUGS (1)
  1. RISPERDAL [Suspect]
     Active Substance: RISPERIDONE
     Indication: ATTENTION DEFICIT/HYPERACTIVITY DISORDER
     Route: 048
     Dates: start: 2000, end: 2002

REACTIONS (5)
  - Obesity [Not Recovered/Not Resolved]
  - Product use in unapproved indication [Unknown]
  - Gynaecomastia [Unknown]
  - Breast cyst [Not Recovered/Not Resolved]
  - Emotional disorder [Unknown]
